FAERS Safety Report 24080151 (Version 1)
Quarter: 2024Q3

REPORT INFORMATION
  Report Type: Spontaneous
  Country: US (occurrence: US)
  Receive Date: 20240711
  Receipt Date: 20240711
  Transmission Date: 20241017
  Serious: No
  Sender: SANOFI AVENTIS
  Company Number: US-SA-SAC20240704001420

PATIENT
  Sex: Female
  Weight: 111.58 kg

DRUGS (3)
  1. DUPIXENT [Suspect]
     Active Substance: DUPILUMAB
     Indication: Asthma
     Dosage: 300 MG QOW
     Route: 058
     Dates: start: 20211110
  2. AMOXICILLIN [Suspect]
     Active Substance: AMOXICILLIN
     Indication: Oral surgery
     Dosage: UNK
  3. RECLAST [Concomitant]
     Active Substance: ZOLEDRONIC ACID
     Dosage: UNK

REACTIONS (2)
  - Oral surgery [Unknown]
  - Urticaria [Unknown]
